FAERS Safety Report 8845719 (Version 1)
Quarter: 2012Q4

REPORT INFORMATION
  Report Type: 
  Country: CA (occurrence: CA)
  Receive Date: 20121017
  Receipt Date: 20121017
  Transmission Date: 20130627
  Serious: Yes (Hospitalization, Other)
  Sender: FDA-Public Use
  Company Number: PHMT2007CA01086

PATIENT
  Age: 46 Year
  Sex: Male

DRUGS (1)
  1. SANDOSTATIN LAR [Suspect]
     Indication: NEUROENDOCRINE TUMOUR
     Dosage: 20 mg once a month
     Route: 030
     Dates: start: 20070410

REACTIONS (12)
  - Liver disorder [Unknown]
  - Haemorrhagic ascites [Unknown]
  - Eating disorder [Unknown]
  - Abdominal pain [Unknown]
  - Asthenia [Unknown]
  - Abdominal distension [Unknown]
  - Weight decreased [Unknown]
  - Decreased appetite [Unknown]
  - Pyrexia [Unknown]
  - Nausea [Unknown]
  - Dyspepsia [Unknown]
  - Constipation [Unknown]
